FAERS Safety Report 4835708-7 (Version None)
Quarter: 2005Q4

REPORT INFORMATION
  Report Type: 
  Country: None (occurrence: None)
  Receive Date: 20051121
  Receipt Date: 20051115
  Transmission Date: 20060501
  Serious: Yes (Death)
  Sender: FDA-Public Use
  Company Number: R301348-PAP-USA

PATIENT
  Age: 69 Year
  Sex: Female
  Weight: 42.6 kg

DRUGS (6)
  1. ACIPHEX [Suspect]
     Indication: GASTROOESOPHAGEAL REFLUX DISEASE
     Dosage: 20 MG, ORAL
     Route: 048
     Dates: start: 20040601
  2. PLAVIX [Concomitant]
  3. REMERON [Concomitant]
  4. PROPOXY [Concomitant]
  5. MIRTAZAPINE [Concomitant]
  6. GABAPENTIN [Concomitant]

REACTIONS (2)
  - LUNG NEOPLASM MALIGNANT [None]
  - NEOPLASM RECURRENCE [None]
